FAERS Safety Report 4908745-1 (Version None)
Quarter: 2006Q1

REPORT INFORMATION
  Report Type: 
  Country: None (occurrence: None)
  Receive Date: 20060210
  Receipt Date: 20051108
  Transmission Date: 20060701
  Serious: No
  Sender: FDA-Public Use
  Company Number: US-GLAXOSMITHKLINE-A0581412A

PATIENT
  Age: 70 Year
  Sex: Male

DRUGS (2)
  1. PAXIL CR [Suspect]
     Indication: DEPRESSION
     Dosage: 25MG PER DAY
     Route: 048
     Dates: start: 20040901, end: 20041101
  2. SYNTHROID [Concomitant]

REACTIONS (3)
  - CONSTIPATION [None]
  - DIVERTICULUM [None]
  - HERNIA [None]
